FAERS Safety Report 11862189 (Version 1)
Quarter: 2015Q4

REPORT INFORMATION
  Report Type: Spontaneous
  Country: US (occurrence: None)
  Receive Date: 20151222
  Receipt Date: 20151222
  Transmission Date: 20160305
  Serious: No
  Sender: FDA-Public Use
  Company Number: None

PATIENT
  Age: 12 Year
  Sex: Male
  Weight: 77.6 kg

DRUGS (2)
  1. GUANFACINE ER 3MG ACTAVIS [Suspect]
     Active Substance: GUANFACINE
     Indication: ATTENTION DEFICIT/HYPERACTIVITY DISORDER
     Route: 048
  2. GUANFACINE ER 3MG ACTAVIS [Suspect]
     Active Substance: GUANFACINE
     Indication: AFFECTIVE DISORDER
     Route: 048

REACTIONS (5)
  - Condition aggravated [None]
  - Irritability [None]
  - Impulsive behaviour [None]
  - Aggression [None]
  - Agitation [None]
